FAERS Safety Report 13596383 (Version 1)
Quarter: 2017Q2

REPORT INFORMATION
  Report Type: Spontaneous
  Country: US (occurrence: US)
  Receive Date: 20170530
  Receipt Date: 20170530
  Transmission Date: 20170830
  Serious: Yes (Disabling, Other)
  Sender: FDA-Public Use
  Company Number: None

PATIENT
  Age: 65 Year
  Sex: Male
  Weight: 64.35 kg

DRUGS (5)
  1. ALFUZOSIN HCL [Suspect]
     Active Substance: ALFUZOSIN HYDROCHLORIDE
     Indication: URINE FLOW DECREASED
     Dosage: ?          QUANTITY:1 TABLET(S);?
     Route: 048
  2. INSTAFLEX L-OPTIZINC SUPER OMEGA-3 [Concomitant]
  3. ULTRA NATURAL PROSTATE [Concomitant]
  4. BIO-CURCUMIN [Concomitant]
  5. N-A-C SUSTAIN [Concomitant]

REACTIONS (6)
  - Residual urine volume increased [None]
  - Prostatomegaly [None]
  - Nocturia [None]
  - Drug ineffective [None]
  - Product measured potency issue [None]
  - Insomnia [None]

NARRATIVE: CASE EVENT DATE: 20170501
